FAERS Safety Report 20302406 (Version 2)
Quarter: 2022Q1

REPORT INFORMATION
  Report Type: Spontaneous
  Country: US (occurrence: US)
  Receive Date: 20220106
  Receipt Date: 20220117
  Transmission Date: 20220423
  Serious: Yes (Hospitalization, Other)
  Sender: FDA-Public Use
  Company Number: US-ADVANZ PHARMA-MAPI_00011700

PATIENT

DRUGS (5)
  1. HYDROXYCHLOROQUINE [Suspect]
     Active Substance: HYDROXYCHLOROQUINE
     Indication: Systemic lupus erythematosus
     Dosage: 200 MG, BID
     Route: 065
     Dates: start: 201405, end: 2015
  2. CELLCEPT [Suspect]
     Active Substance: MYCOPHENOLATE MOFETIL
     Indication: Systemic lupus erythematosus
     Dosage: 1000 MG, BID
     Route: 065
     Dates: start: 201405, end: 2015
  3. INVESTIGATIONAL PRODUCT [Suspect]
     Active Substance: INVESTIGATIONAL PRODUCT
     Indication: Lupus nephritis
     Dosage: 20 MG/KG
     Route: 065
     Dates: start: 20141105, end: 20150106
  4. PREDNISONE [Concomitant]
     Active Substance: PREDNISONE
     Dosage: 60 MG
     Dates: start: 20150115
  5. PREDNISONE [Concomitant]
     Active Substance: PREDNISONE
     Dosage: 50 MG, QD
     Dates: start: 20150115

REACTIONS (8)
  - Autoimmune hepatitis [Recovering/Resolving]
  - Necrosis [Recovering/Resolving]
  - Transaminases increased [Recovering/Resolving]
  - Aspartate aminotransferase increased [Recovering/Resolving]
  - Alanine aminotransferase increased [Recovering/Resolving]
  - Malaise [Recovering/Resolving]
  - Lymphocytic infiltration [Recovering/Resolving]
  - Fatigue [Recovering/Resolving]

NARRATIVE: CASE EVENT DATE: 20150101
